FAERS Safety Report 17781230 (Version 1)
Quarter: 2020Q2

REPORT INFORMATION
  Report Type: Spontaneous
  Country: BR (occurrence: BR)
  Receive Date: 20200514
  Receipt Date: 20200514
  Transmission Date: 20200714
  Serious: Yes (Hospitalization, Other)
  Sender: FDA-Public Use
  Company Number: BR-TORRENT-00005339

PATIENT
  Age: 68 Year
  Sex: Female

DRUGS (6)
  1. METHYLDOPA. [Suspect]
     Active Substance: METHYLDOPA
     Indication: CARDIAC DISORDER
     Dosage: TWO TABLETS DAILY
     Route: 048
     Dates: start: 202004
  2. OLMECOR [Suspect]
     Active Substance: OLMESARTAN MEDOXOMIL
     Indication: HYPERTENSION
     Dosage: ONE TABLET IN THE MORNING
     Route: 048
     Dates: end: 20200420
  3. MANIVASC [Suspect]
     Active Substance: MANIDIPINE HYDROCHLORIDE
     Indication: HYPERTENSION
     Dosage: ONE TABLET AT NIGHT
     Route: 048
     Dates: start: 202004
  4. INSULIN [Concomitant]
     Active Substance: INSULIN NOS
     Indication: DIABETES MELLITUS
     Dosage: UNKNOWN
     Dates: start: 202004
  5. BENICAR [Suspect]
     Active Substance: OLMESARTAN MEDOXOMIL
     Indication: HYPERTENSION
     Dosage: UNKNOWN
  6. CHLORTALIDONE [Suspect]
     Active Substance: CHLORTHALIDONE
     Indication: CARDIAC DISORDER
     Dosage: ONE TABLET IN THE MORNING
     Route: 048
     Dates: start: 202004

REACTIONS (10)
  - Blood glucose fluctuation [Recovered/Resolved]
  - Hypoaesthesia [Not Recovered/Not Resolved]
  - Product substitution issue [Unknown]
  - Hypertensive crisis [Recovered/Resolved]
  - Disturbance in attention [Recovered/Resolved]
  - Product availability issue [Unknown]
  - Intentional self-injury [Recovered/Resolved]
  - Cerebrovascular accident [Recovered/Resolved]
  - Blood pressure increased [Not Recovered/Not Resolved]
  - Therapy change [Unknown]

NARRATIVE: CASE EVENT DATE: 20200201
